FAERS Safety Report 17128984 (Version 1)
Quarter: 2019Q4

REPORT INFORMATION
  Report Type: Spontaneous
  Country: US (occurrence: US)
  Receive Date: 20191207
  Receipt Date: 20191207
  Transmission Date: 20200122
  Serious: Yes (Other)
  Sender: FDA-Public Use
  Company Number: None

PATIENT
  Age: 27 Year
  Sex: Female
  Weight: 58.05 kg

DRUGS (3)
  1. AZITHROMYCIN TABLETS [Suspect]
     Active Substance: AZITHROMYCIN ANHYDROUS
     Indication: INFLUENZA LIKE ILLNESS
     Dosage: ?          QUANTITY:6 TABLET(S);OTHER FREQUENCY:2 TABS DAY 1, THEN;?
     Route: 048
     Dates: start: 20191204, end: 20191204
  2. MELATONIN 3MG PRN [Concomitant]
  3. PROPANOLOL [Concomitant]
     Active Substance: PROPRANOLOL HYDROCHLORIDE

REACTIONS (3)
  - Mouth ulceration [None]
  - Glossodynia [None]
  - Oral pain [None]

NARRATIVE: CASE EVENT DATE: 20191206
